FAERS Safety Report 25083489 (Version 4)
Quarter: 2025Q4

REPORT INFORMATION
  Report Type: Spontaneous
  Country: US (occurrence: US)
  Receive Date: 20250317
  Receipt Date: 20251104
  Transmission Date: 20260118
  Serious: Yes (Hospitalization, Other)
  Sender: CSL BEHRING
  Company Number: US-BEH-2025198552

PATIENT
  Age: 48 Year
  Sex: Female

DRUGS (8)
  1. HIZENTRA [Suspect]
     Active Substance: HUMAN IMMUNOGLOBULIN G
     Indication: Immunodeficiency common variable
     Dosage: 16 G, QW
     Route: 058
     Dates: start: 202412, end: 20250926
  2. DUPIXENT [Suspect]
     Active Substance: DUPILUMAB
     Indication: Asthma
     Dosage: 300 MG, QOW
     Route: 058
     Dates: start: 202406
  3. DUPIXENT [Suspect]
     Active Substance: DUPILUMAB
     Dosage: UNK
  4. DUPIXENT [Concomitant]
     Active Substance: DUPILUMAB
     Dosage: PEN
  5. EPINEPHRINE [Concomitant]
     Active Substance: EPINEPHRINE
     Dosage: AUTO-INJ
  6. BENADRYL [Concomitant]
     Active Substance: DIPHENHYDRAMINE HYDROCHLORIDE
     Indication: Premedication
  7. ZYRTEC [Concomitant]
     Active Substance: CETIRIZINE HYDROCHLORIDE
     Indication: Premedication
  8. ZYRTEC [Concomitant]
     Active Substance: CETIRIZINE HYDROCHLORIDE
     Indication: Premedication

REACTIONS (9)
  - Abdominal hernia [Unknown]
  - Infusion site pain [Unknown]
  - Infusion site pruritus [Unknown]
  - Anaphylactic reaction [Unknown]
  - Infective exacerbation of asthma [Unknown]
  - Therapy cessation [Unknown]
  - Therapy change [Unknown]
  - Pruritus [Unknown]
  - Hyperventilation [Unknown]

NARRATIVE: CASE EVENT DATE: 20250101
